FAERS Safety Report 16212225 (Version 1)
Quarter: 2019Q2

REPORT INFORMATION
  Report Type: Spontaneous
  Country: US (occurrence: US)
  Receive Date: 20190314
  Receipt Date: 20190314
  Transmission Date: 20190711
  Serious: No
  Sender: FDA-Public Use
  Company Number: None

PATIENT
  Age: 57 Year
  Sex: Male

DRUGS (1)
  1. ZYTIGA [Suspect]
     Active Substance: ABIRATERONE ACETATE
     Route: 048
     Dates: start: 201812

REACTIONS (6)
  - Stomatitis [None]
  - Pain [None]
  - Neuropathy peripheral [None]
  - Peripheral swelling [None]
  - Headache [None]
  - Red blood cell count decreased [None]

NARRATIVE: CASE EVENT DATE: 20190314
